FAERS Safety Report 16449359 (Version 3)
Quarter: 2019Q3

REPORT INFORMATION
  Report Type: Report from Study
  Country: US (occurrence: US)
  Receive Date: 20190619
  Receipt Date: 20190909
  Transmission Date: 20191004
  Serious: Yes (Hospitalization)
  Sender: FDA-Public Use
  Company Number: US-B.I. PHARMACEUTICALS,INC./RIDGEFIELD-2019-BI-026747

PATIENT
  Sex: Male

DRUGS (1)
  1. OFEV [Suspect]
     Active Substance: NINTEDANIB
     Indication: IDIOPATHIC PULMONARY FIBROSIS
     Route: 048
     Dates: start: 20190423

REACTIONS (7)
  - Haematochezia [Unknown]
  - Amnesia [Unknown]
  - Respiratory rate increased [Unknown]
  - Confusional state [Unknown]
  - Dyspnoea [Unknown]
  - Lung infection [Unknown]
  - Oxygen saturation decreased [Unknown]
